FAERS Safety Report 10711796 (Version 13)
Quarter: 2019Q4

REPORT INFORMATION
  Report Type: Spontaneous
  Country: US (occurrence: US)
  Receive Date: 20150114
  Receipt Date: 20191206
  Transmission Date: 20200122
  Serious: Yes (Hospitalization, Other)
  Sender: FDA-Public Use
  Company Number: US-009507513-1110USA03594

PATIENT
  Sex: Male
  Weight: 78.19 kg

DRUGS (3)
  1. PROPECIA [Suspect]
     Active Substance: FINASTERIDE
     Indication: ANDROGENETIC ALOPECIA
     Dosage: 1 MG, DAILY
     Route: 048
     Dates: start: 200906, end: 2009
  2. PROPECIA [Suspect]
     Active Substance: FINASTERIDE
     Dosage: 1 MG, DAILY
     Route: 048
     Dates: start: 20100128, end: 20100210
  3. PROPECIA [Suspect]
     Active Substance: FINASTERIDE
     Dosage: 1 MG, DAILY
     Route: 048
     Dates: start: 200907, end: 2009

REACTIONS (66)
  - Genital hypoaesthesia [Not Recovered/Not Resolved]
  - Dry eye [Unknown]
  - Gastroenteritis viral [Unknown]
  - Panic attack [Unknown]
  - Tongue discolouration [Unknown]
  - Haematocrit decreased [Unknown]
  - Semen analysis abnormal [Unknown]
  - Social avoidant behaviour [Not Recovered/Not Resolved]
  - Gastroenteritis viral [Unknown]
  - Gastroenteritis viral [Unknown]
  - Hypotrichosis [Not Recovered/Not Resolved]
  - Semen discolouration [Unknown]
  - Urethral discharge [Not Recovered/Not Resolved]
  - Dandruff [Unknown]
  - Spinal flattening [Unknown]
  - Testicular failure [Unknown]
  - Libido decreased [Not Recovered/Not Resolved]
  - Sexual dysfunction [Not Recovered/Not Resolved]
  - Testicular pain [Recovered/Resolved]
  - Insomnia [Not Recovered/Not Resolved]
  - Dengue fever [Unknown]
  - Photophobia [Unknown]
  - Stress [Unknown]
  - Feeling hot [Unknown]
  - Hyperhidrosis [Unknown]
  - Progesterone increased [Unknown]
  - Sexual dysfunction [Not Recovered/Not Resolved]
  - Depression [Recovered/Resolved]
  - Ejaculation disorder [Unknown]
  - Asthenia [Recovered/Resolved]
  - Depressed mood [Not Recovered/Not Resolved]
  - Hyperaldosteronism [Unknown]
  - Prostatitis [Unknown]
  - Hair growth abnormal [Unknown]
  - Weight increased [Not Recovered/Not Resolved]
  - Adjustment disorder [Not Recovered/Not Resolved]
  - Eczema [Unknown]
  - Ejaculation failure [Unknown]
  - Spermatozoa morphology abnormal [Unknown]
  - Libido decreased [Recovered/Resolved]
  - Cognitive disorder [Recovered/Resolved]
  - Suicidal ideation [Unknown]
  - Prostatic disorder [Unknown]
  - Orchitis [Recovered/Resolved]
  - Dysuria [Recovered/Resolved]
  - Semen liquefaction [Not Recovered/Not Resolved]
  - Seborrhoea [Unknown]
  - Pelvic floor dyssynergia [Unknown]
  - Gynaecomastia [Unknown]
  - Cognitive disorder [Unknown]
  - Pseudohermaphroditism male [Unknown]
  - Erectile dysfunction [Not Recovered/Not Resolved]
  - Anxiety [Not Recovered/Not Resolved]
  - Abdominal distension [Unknown]
  - Dry skin [Unknown]
  - Hepatitis A [Recovered/Resolved]
  - Semen volume decreased [Unknown]
  - Depression [Unknown]
  - Neuropathy peripheral [Unknown]
  - Skin laceration [Unknown]
  - Temperature intolerance [Unknown]
  - Testicular disorder [Unknown]
  - Urinary tract infection [Recovered/Resolved]
  - pH semen increased [Unknown]
  - Asthenia [Unknown]
  - Disturbance in attention [Not Recovered/Not Resolved]

NARRATIVE: CASE EVENT DATE: 2009
